FAERS Safety Report 8550007-8 (Version None)
Quarter: 2012Q3

REPORT INFORMATION
  Report Type: 
  Country: None (occurrence: None)
  Receive Date: 20120730
  Receipt Date: 20120719
  Transmission Date: 20120928
  Serious: Yes (Life-Threatening, Hospitalization)
  Sender: FDA-Public Use
  Company Number: US-BAYER-2012-043124

PATIENT
  Age: 42 Year
  Sex: Female

DRUGS (12)
  1. YASMIN [Suspect]
  2. DROSPIRENONE AND ETHINYL ESTRADIOL [Suspect]
  3. YAZ [Suspect]
  4. VITAMIN TAB [Concomitant]
  5. AUGMENTIN '500' [Concomitant]
     Dosage: 875 XG
  6. CEPHALEXIN [Concomitant]
     Dosage: 500 MG, UNK
  7. VICOPROFEN [Concomitant]
     Dosage: 7.5 MG, UNK
  8. VIOXX [Concomitant]
  9. KEFLEX [Concomitant]
  10. GUAIFENESIN AND PSEUDOEPHEDRINE HYDROCHLORIDE [Concomitant]
  11. DIFLUCAN [Concomitant]
     Dosage: 150 MG, UNK
  12. CELEBREX [Concomitant]
     Dosage: 100 MG, UNK

REACTIONS (8)
  - INJURY [None]
  - ANXIETY [None]
  - EMOTIONAL DISTRESS [None]
  - DEEP VEIN THROMBOSIS [None]
  - ANHEDONIA [None]
  - PULMONARY EMBOLISM [None]
  - PAIN [None]
  - GENERAL PHYSICAL HEALTH DETERIORATION [None]
